FAERS Safety Report 8883350 (Version 7)
Quarter: 2014Q2

REPORT INFORMATION
  Report Type: Spontaneous
  Country: US (occurrence: US)
  Receive Date: 20121102
  Receipt Date: 20140428
  Transmission Date: 20141212
  Serious: Yes (Hospitalization, Other)
  Sender: FDA-Public Use
  Company Number: US-009507513-1210USA010425

PATIENT
  Sex: Female
  Weight: 52.15 kg

DRUGS (8)
  1. FOSAMAX [Suspect]
     Indication: OSTEOPOROSIS
     Dosage: 70 MG, UNK
     Route: 048
     Dates: start: 2003, end: 201107
  2. FOSAMAX PLUS D [Suspect]
     Indication: OSTEOPOROSIS
     Dosage: 2800 UNK, UNK
     Route: 048
     Dates: start: 20071008, end: 20080803
  3. ALENDRONATE SODIUM [Suspect]
     Indication: OSTEOPOROSIS
     Dosage: 70 MG, QW
     Dates: start: 20081028
  4. SYNTHROID [Concomitant]
     Indication: HYPOTHYROIDISM
     Dosage: 75 MICROGRAM, QD
     Dates: start: 1970
  5. LEVOTHYROXINE SODIUM [Concomitant]
     Indication: HYPOTHYROIDISM
     Dosage: UNK
     Dates: start: 1970
  6. ZYRTEC [Concomitant]
     Indication: ALLERGIC SINUSITIS
     Dosage: UNK
  7. NASONEX [Concomitant]
     Indication: ALLERGIC SINUSITIS
     Dosage: UNK, PRN
  8. LIPITOR [Concomitant]
     Indication: HYPERLIPIDAEMIA
     Dosage: 20 MG, HS

REACTIONS (25)
  - Intramedullary rod insertion [Unknown]
  - Skin cancer [Unknown]
  - Femur fracture [Recovered/Resolved]
  - Wrist fracture [Unknown]
  - Low turnover osteopathy [Unknown]
  - Calcium deficiency [Recovered/Resolved]
  - Vitamin D deficiency [Unknown]
  - Vitamin D deficiency [Unknown]
  - Cardiac murmur [Unknown]
  - Cardiac valve disease [Unknown]
  - Osteoarthritis [Unknown]
  - Body height decreased [Unknown]
  - Kyphosis [Unknown]
  - Hypervitaminosis [Unknown]
  - Goitre [Unknown]
  - Autoimmune thyroiditis [Unknown]
  - Exostosis [Unknown]
  - Balance disorder [Unknown]
  - Osteopenia [Unknown]
  - Spinal deformity [Unknown]
  - Aortic calcification [Unknown]
  - Dilatation atrial [Unknown]
  - Muscular weakness [Unknown]
  - Blood thyroid stimulating hormone increased [Unknown]
  - Constipation [Recovered/Resolved]
